FAERS Safety Report 23643851 (Version 4)
Quarter: 2024Q3

REPORT INFORMATION
  Report Type: Spontaneous
  Country: US (occurrence: US)
  Receive Date: 20240318
  Receipt Date: 20240814
  Transmission Date: 20241016
  Serious: No
  Sender: CALLIDITAS THERAPEUTICS
  Company Number: US-Calliditas-2024CAL00390

PATIENT
  Age: 28 Year
  Sex: Male
  Weight: 76.2 kg

DRUGS (1)
  1. TARPEYO [Suspect]
     Active Substance: BUDESONIDE
     Indication: IgA nephropathy
     Route: 048
     Dates: start: 20240221

REACTIONS (4)
  - Pollakiuria [Unknown]
  - Increased tendency to bruise [Recovered/Resolved]
  - Hypertension [Unknown]
  - Product residue present [Unknown]

NARRATIVE: CASE EVENT DATE: 20240612
